FAERS Safety Report 10608246 (Version 1)
Quarter: 2014Q4

REPORT INFORMATION
  Report Type: Spontaneous
  Country: DE (occurrence: DE)
  Receive Date: 20141125
  Receipt Date: 20141125
  Transmission Date: 20150529
  Serious: Yes (Congenital Anomaly)
  Sender: FDA-Public Use
  Company Number: DE-TEVA-522743GER

PATIENT
  Age: 1 Day
  Sex: Male

DRUGS (4)
  1. PREDNISOLON [Suspect]
     Active Substance: PREDNISOLONE
     Indication: IDIOPATHIC ORBITAL INFLAMMATION
     Dosage: 5 MILLIGRAM DAILY;
     Route: 064
     Dates: start: 20130701, end: 20140324
  2. VAXIGRIP [Concomitant]
     Active Substance: INFLUENZA VIRUS VACCINE
     Indication: IMMUNISATION
     Route: 064
     Dates: start: 20131106, end: 20131106
  3. AZATHIOPRINE. [Suspect]
     Active Substance: AZATHIOPRINE
     Indication: IDIOPATHIC ORBITAL INFLAMMATION
     Dosage: 50 MILLIGRAM DAILY;
     Route: 064
     Dates: start: 20130701, end: 20140324
  4. FOLIO FORTE [Concomitant]
     Active Substance: FOLIC ACID\VITAMINS
     Indication: PROPHYLAXIS OF NEURAL TUBE DEFECT
     Dosage: BETWEEN 0.8 MG/D AND 0.4 MG/D
     Route: 064
     Dates: start: 20130701, end: 20140323

REACTIONS (3)
  - Atrial septal defect [Unknown]
  - Haemangioma congenital [Not Recovered/Not Resolved]
  - Foetal exposure during pregnancy [Unknown]

NARRATIVE: CASE EVENT DATE: 20140324
